FAERS Safety Report 10757802 (Version 3)
Quarter: 2015Q1

REPORT INFORMATION
  Report Type: Report from Study
  Country: DE (occurrence: DE)
  Receive Date: 20150203
  Receipt Date: 20150220
  Transmission Date: 20150721
  Serious: Yes (Hospitalization, Other)
  Sender: FDA-Public Use
  Company Number: DE-BAYER-2015-011624

PATIENT
  Age: 40 Year
  Sex: Female

DRUGS (1)
  1. BETAFERON [Suspect]
     Active Substance: INTERFERON BETA-1B
     Indication: MULTIPLE SCLEROSIS
     Dosage: 250 ?G, QOD
     Route: 058
     Dates: start: 200510

REACTIONS (5)
  - Pain [None]
  - Wrong technique in drug usage process [None]
  - Fasciitis [Recovering/Resolving]
  - Injection site abscess [None]
  - Injection site induration [None]

NARRATIVE: CASE EVENT DATE: 20150116
